FAERS Safety Report 9553999 (Version 1)
Quarter: 2013Q3

REPORT INFORMATION
  Report Type: Spontaneous
  Country: US (occurrence: US)
  Receive Date: 20130925
  Receipt Date: 20130925
  Transmission Date: 20140515
  Serious: Yes (Hospitalization)
  Sender: FDA-Public Use
  Company Number: US-GLAXOSMITHKLINE-A1042687A

PATIENT
  Age: 82 Year
  Sex: Male

DRUGS (1)
  1. SORIATANE [Suspect]
     Indication: PSORIASIS
     Dosage: 25MG UNKNOWN
     Route: 048
     Dates: start: 20110915

REACTIONS (2)
  - Cardiac disorder [Unknown]
  - Cough [Unknown]
